FAERS Safety Report 11625785 (Version 1)
Quarter: 2015Q4

REPORT INFORMATION
  Report Type: Spontaneous
  Country: US (occurrence: US)
  Receive Date: 20151013
  Receipt Date: 20151013
  Transmission Date: 20160304
  Serious: No
  Sender: FDA-Public Use
  Company Number: US-ELI_LILLY_AND_COMPANY-US201510003363

PATIENT
  Age: 38 Year
  Sex: Female

DRUGS (2)
  1. PROZAC [Suspect]
     Active Substance: FLUOXETINE HYDROCHLORIDE
     Indication: FRUSTRATION
  2. PROZAC [Suspect]
     Active Substance: FLUOXETINE HYDROCHLORIDE
     Indication: ANXIETY
     Dosage: 60 MG, QD
     Route: 065
     Dates: start: 2005

REACTIONS (12)
  - Insomnia [Unknown]
  - Anxiety [Unknown]
  - Obsessive-compulsive disorder [Unknown]
  - Bruxism [Unknown]
  - Personality change [Unknown]
  - Agitation [Unknown]
  - Foreign body [Unknown]
  - Decreased interest [Unknown]
  - Abnormal behaviour [Unknown]
  - Abnormal behaviour [Unknown]
  - Decreased appetite [Not Recovered/Not Resolved]
  - Nervousness [Unknown]

NARRATIVE: CASE EVENT DATE: 201504
